FAERS Safety Report 8313040-7 (Version None)
Quarter: 2012Q2

REPORT INFORMATION
  Report Type: 
  Country: None (occurrence: None)
  Receive Date: 20120424
  Receipt Date: 20120410
  Transmission Date: 20120825
  Serious: Yes (Other)
  Sender: FDA-Public Use
  Company Number: 2012MA004819

PATIENT
  Age: 38 Year
  Sex: Male

DRUGS (1)
  1. FLUOXETINE HYDROCHLORIDE [Suspect]
     Indication: ANXIETY
     Dosage: 20 MG;
     Dates: end: 20120104

REACTIONS (4)
  - COGNITIVE DISORDER [None]
  - SUICIDAL IDEATION [None]
  - DEPRESSED MOOD [None]
  - DRUG INEFFECTIVE [None]
